FAERS Safety Report 24259305 (Version 1)
Quarter: 2024Q3

REPORT INFORMATION
  Report Type: Spontaneous
  Country: US (occurrence: None)
  Receive Date: 20240828
  Receipt Date: 20240828
  Transmission Date: 20241016
  Serious: Yes (Hospitalization)
  Sender: Public
  Company Number: None

PATIENT
  Sex: Male
  Weight: 68.6 kg

DRUGS (2)
  1. GEMCITABINE HYDROCHLORIDE [Suspect]
     Active Substance: GEMCITABINE HYDROCHLORIDE
  2. PACLITAXEL [Concomitant]
     Active Substance: PACLITAXEL

REACTIONS (3)
  - Cardiac failure [None]
  - Pulmonary oedema [None]
  - Pleural effusion [None]

NARRATIVE: CASE EVENT DATE: 20240826
